FAERS Safety Report 25826731 (Version 1)
Quarter: 2025Q3

REPORT INFORMATION
  Report Type: Report from Study
  Country: US (occurrence: US)
  Receive Date: 20250920
  Receipt Date: 20250920
  Transmission Date: 20251020
  Serious: Yes (Other)
  Sender: ABBVIE
  Company Number: US-ABBVIE-6465501

PATIENT
  Age: 74 Year
  Sex: Female

DRUGS (2)
  1. RINVOQ [Suspect]
     Active Substance: UPADACITINIB
     Indication: Rheumatoid arthritis
     Dosage: STRENGTH;15 MG
     Route: 048
     Dates: start: 202507
  2. RINVOQ [Suspect]
     Active Substance: UPADACITINIB
     Indication: Rheumatoid arthritis
     Dosage: STRENGTH;15 MG?ADMIN DATE 2025
     Route: 048

REACTIONS (6)
  - Cataract [Unknown]
  - Oropharyngeal pain [Recovered/Resolved]
  - Chills [Recovered/Resolved]
  - SARS-CoV-2 test positive [Unknown]
  - Pain [Unknown]
  - General physical health deterioration [Unknown]

NARRATIVE: CASE EVENT DATE: 20250101
